FAERS Safety Report 7452462-3 (Version None)
Quarter: 2011Q2

REPORT INFORMATION
  Report Type: 
  Country: None (occurrence: None)
  Receive Date: 20110425
  Receipt Date: 20110412
  Transmission Date: 20111010
  Serious: Yes (Death)
  Sender: FDA-Public Use
  Company Number: TPA2011A00582

PATIENT
  Age: 65 Year
  Sex: Male
  Weight: 120.2032 kg

DRUGS (1)
  1. ACTOS [Suspect]
     Indication: DIABETES MELLITUS
     Dosage: 15 MG, 1 IN 1 D, PER ORAL,  BETWEEN FEB/2010 - UNTIL DEATH
     Route: 048
     Dates: start: 20100201

REACTIONS (4)
  - HYPOXIC-ISCHAEMIC ENCEPHALOPATHY [None]
  - CARDIO-RESPIRATORY ARREST [None]
  - PULMONARY OEDEMA [None]
  - RESPIRATORY FAILURE [None]
